FAERS Safety Report 21920961 (Version 1)
Quarter: 2023Q1

REPORT INFORMATION
  Report Type: Spontaneous
  Country: CA (occurrence: CA)
  Receive Date: 20230127
  Receipt Date: 20230127
  Transmission Date: 20230418
  Serious: Yes (Death)
  Sender: FDA-Public Use
  Company Number: CA-SPECGX-T202300580

PATIENT
  Age: 59 Year
  Sex: Female

DRUGS (4)
  1. METHADOSE [Suspect]
     Active Substance: METHADONE HYDROCHLORIDE
     Indication: Product used for unknown indication
     Dosage: 3 MILLIGRAM, QD
     Route: 065
  2. PREGABALIN [Suspect]
     Active Substance: PREGABALIN
     Indication: Product used for unknown indication
     Dosage: 150 MILLIGRAM, QD
     Route: 065
  3. METFORMIN [Concomitant]
     Active Substance: METFORMIN HYDROCHLORIDE
     Indication: Product used for unknown indication
     Dosage: 1000 MILLIGRAM, QD
     Route: 065
  4. PREDNISONE [Concomitant]
     Active Substance: PREDNISONE
     Indication: Product used for unknown indication
     Dosage: UNK
     Route: 065

REACTIONS (11)
  - Hypoxic-ischaemic encephalopathy [Fatal]
  - Oxygen saturation decreased [Fatal]
  - Somnolence [Fatal]
  - Respiratory acidosis [Fatal]
  - Snoring [Fatal]
  - Altered state of consciousness [Fatal]
  - Unresponsive to stimuli [Fatal]
  - Seizure [Fatal]
  - Respiratory depression [Fatal]
  - Hypotension [Fatal]
  - Wrong patient received product [Unknown]
